FAERS Safety Report 4984640-7 (Version None)
Quarter: 2006Q2

REPORT INFORMATION
  Report Type: 
  Country: None (occurrence: None)
  Receive Date: 20060426
  Receipt Date: 20060426
  Transmission Date: 20061013
  Serious: Yes (Hospitalization)
  Sender: FDA-Public Use
  Company Number: None

PATIENT
  Age: 64 Year
  Sex: Male
  Weight: 82.5547 kg

DRUGS (2)
  1. NPH INSULIN [Suspect]
     Indication: DIABETES MELLITUS
     Dosage: 50 UNITS AM, 35 UNITS PM
     Dates: start: 20051208, end: 20060318
  2. METFORMIN HCL [Suspect]
     Dosage: 850 MG TID
     Dates: start: 20031125, end: 20060318

REACTIONS (1)
  - HYPOGLYCAEMIA [None]
